FAERS Safety Report 8204371-X (Version None)
Quarter: 2012Q1

REPORT INFORMATION
  Report Type: 
  Country: None (occurrence: None)
  Receive Date: 20120313
  Receipt Date: 20120313
  Transmission Date: 20120608
  Serious: Yes (Other)
  Sender: FDA-Public Use
  Company Number: None

PATIENT
  Age: 67 Year
  Sex: Male
  Weight: 115.66 kg

DRUGS (1)
  1. PRADAXA [Suspect]
     Indication: ATRIAL FIBRILLATION
     Dosage: 150 MG.
     Route: 048
     Dates: start: 20120302, end: 20120309

REACTIONS (6)
  - DYSPNOEA [None]
  - IMPAIRED DRIVING ABILITY [None]
  - MALAISE [None]
  - ASTHENIA [None]
  - MUSCLE DISORDER [None]
  - DECREASED ACTIVITY [None]
